FAERS Safety Report 5738368-6 (Version None)
Quarter: 2008Q2

REPORT INFORMATION
  Report Type: 
  Country: None (occurrence: None)
  Receive Date: 20080514
  Receipt Date: 20080505
  Transmission Date: 20081010
  Serious: Yes (Hospitalization, Other)
  Sender: FDA-Public Use
  Company Number: US-AMGEN-QUU274276

PATIENT
  Sex: Female
  Weight: 75.4 kg

DRUGS (1)
  1. ENBREL [Suspect]
     Indication: RHEUMATOID ARTHRITIS
     Route: 058
     Dates: start: 20060718

REACTIONS (4)
  - ARTHRITIS [None]
  - HISTOPLASMOSIS [None]
  - INTERSTITIAL LUNG DISEASE [None]
  - LYMPHADENOPATHY MEDIASTINAL [None]
